FAERS Safety Report 10087938 (Version 1)
Quarter: 2014Q2

REPORT INFORMATION
  Report Type: Spontaneous
  Country: US (occurrence: US)
  Receive Date: 20140419
  Receipt Date: 20140419
  Transmission Date: 20141212
  Serious: Yes (Disabling)
  Sender: FDA-Public Use
  Company Number: US-ACCORD-023118

PATIENT
  Sex: Female

DRUGS (1)
  1. MONTELUKAST [Suspect]
     Indication: PRODUCT USED FOR UNKNOWN INDICATION
     Dosage: MONTELUKAST SODIUM

REACTIONS (1)
  - Asthma [Unknown]
